FAERS Safety Report 20983142 (Version 1)
Quarter: 2022Q2

REPORT INFORMATION
  Report Type: Spontaneous
  Country: BR (occurrence: BR)
  Receive Date: 20220620
  Receipt Date: 20220620
  Transmission Date: 20220721
  Serious: Yes (Hospitalization)
  Sender: FDA-Public Use
  Company Number: BR-ELI_LILLY_AND_COMPANY-BR202204013528

PATIENT
  Age: 76 Year
  Sex: Female

DRUGS (1)
  1. ABEMACICLIB [Suspect]
     Active Substance: ABEMACICLIB
     Indication: Breast cancer metastatic
     Dosage: 150 MG, DAILY
     Route: 048
     Dates: start: 202203

REACTIONS (5)
  - Impaired healing [Not Recovered/Not Resolved]
  - Platelet count decreased [Unknown]
  - Wound haemorrhage [Not Recovered/Not Resolved]
  - Inappropriate schedule of product administration [Unknown]
  - Anaemia [Unknown]

NARRATIVE: CASE EVENT DATE: 20220301
